FAERS Safety Report 5717357-1 (Version None)
Quarter: 2008Q2

REPORT INFORMATION
  Report Type: 
  Country: None (occurrence: None)
  Receive Date: 20080425
  Receipt Date: 20080416
  Transmission Date: 20081010
  Serious: Yes (Hospitalization)
  Sender: FDA-Public Use
  Company Number: CL-RANBAXY-2008RR-13893

PATIENT

DRUGS (1)
  1. FUROSEMIDE TABLETS BP 40MG [Suspect]
     Dosage: UNK

REACTIONS (4)
  - DRUG ABUSE [None]
  - ELECTROCARDIOGRAM ABNORMAL [None]
  - HYPOKALAEMIA [None]
  - HYPOVOLAEMIA [None]
